FAERS Safety Report 8285909-3 (Version None)
Quarter: 2012Q2

REPORT INFORMATION
  Report Type: 
  Country: None (occurrence: None)
  Receive Date: 20120414
  Receipt Date: 20120405
  Transmission Date: 20120825
  Serious: Yes (Hospitalization, Other)
  Sender: FDA-Public Use
  Company Number: JP-VERTEX PHARMACEUTICALS INC.-AE-2012-003273

PATIENT
  Age: 63 Year
  Sex: Male

DRUGS (9)
  1. REBETOL [Concomitant]
     Route: 048
     Dates: start: 20120307, end: 20120309
  2. SEDEKOPAN [Concomitant]
     Route: 048
     Dates: start: 20120309
  3. REBETOL [Concomitant]
     Indication: HEPATITIS C
     Dates: start: 20120207
  4. PEG-INTRON [Concomitant]
     Indication: HEPATITIS C
     Route: 058
     Dates: start: 20120207
  5. TELAVIC (TELAPREVIR) [Suspect]
     Route: 048
     Dates: start: 20120308
  6. TELAVIC (TELAPREVIR) [Suspect]
     Indication: HEPATITIS C
     Route: 048
     Dates: start: 20120207, end: 20120307
  7. REBETOL [Concomitant]
     Route: 048
  8. CONIEL [Concomitant]
     Route: 048
  9. REBETOL [Concomitant]
     Route: 048
     Dates: start: 20120310

REACTIONS (4)
  - SYNCOPE [None]
  - DECREASED APPETITE [None]
  - ANAEMIA [None]
  - RENAL DISORDER [None]
